FAERS Safety Report 6755410-4 (Version None)
Quarter: 2010Q2

REPORT INFORMATION
  Report Type: 
  Country: None (occurrence: None)
  Receive Date: 20100604
  Receipt Date: 20100527
  Transmission Date: 20101027
  Serious: Yes (Other)
  Sender: FDA-Public Use
  Company Number: US-JNJFOC-20100510912

PATIENT
  Sex: Female

DRUGS (2)
  1. LEVAQUIN [Suspect]
     Indication: PNEUMONIA
     Route: 042
  2. METHYLPREDNISOLONE 16MG TAB [Suspect]
     Indication: PNEUMONIA
     Route: 065

REACTIONS (2)
  - HEADACHE [None]
  - VISUAL IMPAIRMENT [None]
